FAERS Safety Report 17545861 (Version 1)
Quarter: 2020Q1

REPORT INFORMATION
  Report Type: Report from Study
  Country: IT (occurrence: IT)
  Receive Date: 20200316
  Receipt Date: 20200316
  Transmission Date: 20200409
  Serious: Yes (Hospitalization)
  Sender: FDA-Public Use
  Company Number: IT-MYLANLABS-2020M1026926

PATIENT
  Age: 67 Year
  Sex: Female

DRUGS (3)
  1. OLANZAPINE. [Suspect]
     Active Substance: OLANZAPINE
     Indication: PRODUCT USED FOR UNKNOWN INDICATION
     Dosage: 1050 MILLIGRAM, TOTAL
     Route: 048
     Dates: start: 20190724, end: 20190724
  2. DELORAZEPAM [Suspect]
     Active Substance: DELORAZEPAM
     Indication: PRODUCT USED FOR UNKNOWN INDICATION
     Dosage: 20 MILLIGRAM, TOTAL
     Route: 048
     Dates: start: 20190724, end: 20190724
  3. EN [Suspect]
     Active Substance: DELORAZEPAM
     Indication: PRODUCT USED FOR UNKNOWN INDICATION
     Dosage: 60 MILLIGRAM, TOTAL
     Route: 048
     Dates: start: 20190724, end: 20190724

REACTIONS (3)
  - Substance abuse [Recovering/Resolving]
  - Mydriasis [Recovering/Resolving]
  - Loss of consciousness [Recovering/Resolving]

NARRATIVE: CASE EVENT DATE: 20190724
